FAERS Safety Report 20301236 (Version 6)
Quarter: 2022Q2

REPORT INFORMATION
  Report Type: Report from Study
  Country: US (occurrence: US)
  Receive Date: 20220105
  Receipt Date: 20220524
  Transmission Date: 20220720
  Serious: No
  Sender: FDA-Public Use
  Company Number: US-NOVARTISTESTPH-NVSC2022US000795

PATIENT
  Sex: Female
  Weight: 48.98 kg

DRUGS (5)
  1. TREPROSTINIL [Suspect]
     Active Substance: TREPROSTINIL
     Indication: Pulmonary arterial hypertension
     Dosage: 78 NG/KG/MIN
     Route: 058
     Dates: start: 20210708
  2. TREPROSTINIL [Suspect]
     Active Substance: TREPROSTINIL
     Indication: Pulmonary arterial hypertension
     Dosage: 78 NG/KG/MIN
     Route: 058
     Dates: start: 20210708
  3. TREPROSTINIL [Suspect]
     Active Substance: TREPROSTINIL
     Dosage: 80 NG/KG/ MINUTE
     Route: 058
     Dates: start: 20210708
  4. OPSUMIT [Suspect]
     Active Substance: MACITENTAN
     Indication: Product used for unknown indication
     Dosage: UNK
     Route: 065
  5. OFEV [Concomitant]
     Active Substance: NINTEDANIB
     Indication: Product used for unknown indication
     Dosage: UNK
     Route: 065

REACTIONS (7)
  - Somnolence [Unknown]
  - Hypertension [Unknown]
  - Infusion site erythema [Unknown]
  - Infusion site swelling [Unknown]
  - Infusion site pruritus [Unknown]
  - Infusion site pain [Unknown]
  - Device infusion issue [Unknown]
